FAERS Safety Report 11049329 (Version 1)
Quarter: 2015Q2

REPORT INFORMATION
  Report Type: Spontaneous
  Country: FR (occurrence: FR)
  Receive Date: 20150420
  Receipt Date: 20150420
  Transmission Date: 20150821
  Serious: Yes (Hospitalization)
  Sender: FDA-Public Use
  Company Number: FR-MYLANLABS-2015M1012943

PATIENT

DRUGS (4)
  1. METFORMIN [Suspect]
     Active Substance: METFORMIN HYDROCHLORIDE
     Route: 065
     Dates: start: 201204
  2. IRBESARTAN. [Concomitant]
     Active Substance: IRBESARTAN
     Route: 065
     Dates: start: 201204
  3. ASPIRIN                            /00002701/ [Concomitant]
     Active Substance: ASPIRIN
     Route: 065
     Dates: start: 201204
  4. HYDROCHLOROTHIAZIDE. [Concomitant]
     Active Substance: HYDROCHLOROTHIAZIDE
     Route: 065
     Dates: start: 201204

REACTIONS (1)
  - Toxic encephalopathy [Recovered/Resolved]
